FAERS Safety Report 5315812-X (Version None)
Quarter: 2007Q2

REPORT INFORMATION
  Report Type: 
  Country: None (occurrence: None)
  Receive Date: 20070503
  Receipt Date: 20070427
  Transmission Date: 20071010
  Serious: Yes (Other)
  Sender: FDA-Public Use
  Company Number: JP-GLAXOSMITHKLINE-B0466299A

PATIENT
  Age: 72 Year
  Sex: Male
  Weight: 54 kg

DRUGS (8)
  1. CEFAMEZIN [Suspect]
     Indication: GASTRIC OPERATION
     Dosage: 1G FOUR TIMES PER DAY
     Route: 042
     Dates: start: 20070329, end: 20070329
  2. REMIFENTANIL [Concomitant]
     Route: 065
     Dates: start: 20070329, end: 20070329
  3. PROPOFOL [Concomitant]
     Route: 065
     Dates: start: 20070329, end: 20070329
  4. VECURONIUM BROMIDE [Concomitant]
     Route: 065
     Dates: start: 20070329, end: 20070329
  5. LIDOCAINE [Concomitant]
     Dates: start: 20070329, end: 20070329
  6. XYLOCAINE W/ EPINEPHRINE [Concomitant]
     Dates: start: 20070329, end: 20070329
  7. UNKNOWN MEDICATION [Concomitant]
     Dates: start: 20070329, end: 20070329
  8. VEEN F [Concomitant]
     Dates: start: 20070329, end: 20070329

REACTIONS (3)
  - ANAPHYLACTIC SHOCK [None]
  - BLOOD PRESSURE DECREASED [None]
  - HOT FLUSH [None]
